FAERS Safety Report 7240621-4 (Version None)
Quarter: 2011Q1

REPORT INFORMATION
  Report Type: 
  Country: None (occurrence: None)
  Receive Date: 20110120
  Receipt Date: 20110120
  Transmission Date: 20110831
  Serious: Yes (Other)
  Sender: FDA-Public Use
  Company Number: None

PATIENT
  Sex: Female
  Weight: 52.1637 kg

DRUGS (1)
  1. TUSSIN DM COUGH [Suspect]
     Indication: COUGH
     Dosage: 2 TSP
     Dates: start: 20101221

REACTIONS (5)
  - HALLUCINATION [None]
  - ABDOMINAL DISCOMFORT [None]
  - DIZZINESS [None]
  - NAUSEA [None]
  - NERVOUSNESS [None]
